FAERS Safety Report 12729270 (Version 3)
Quarter: 2016Q4

REPORT INFORMATION
  Report Type: Spontaneous
  Country: US (occurrence: US)
  Receive Date: 20160909
  Receipt Date: 20161115
  Transmission Date: 20170207
  Serious: Yes (Hospitalization)
  Sender: FDA-Public Use
  Company Number: US-PFIZER INC-2016421409

PATIENT
  Age: 59 Year
  Sex: Female

DRUGS (6)
  1. PRISTIQ EXTENDED-RELEASE [Suspect]
     Active Substance: DESVENLAFAXINE SUCCINATE
     Indication: ANXIETY
     Dosage: 50 MG, DAILY
  2. LYRICA [Concomitant]
     Active Substance: PREGABALIN
     Dosage: 225 MG, 1X/DAY (AFTER EATING BREAKFAST)
  3. PRISTIQ EXTENDED-RELEASE [Suspect]
     Active Substance: DESVENLAFAXINE SUCCINATE
     Indication: DEPRESSION
     Dosage: 100 MG, 1X/DAY
  4. ESTRADIOL. [Concomitant]
     Active Substance: ESTRADIOL
     Dosage: 0.25 MG, 1/2 OF ONE TAB BARR LABS,AFTER EATING BREAKFAST
  5. OMEPRAZOLE. [Concomitant]
     Active Substance: OMEPRAZOLE
     Dosage: 40 MG, 1X/DAY (BEFORE EATING BREAKFAST)
  6. ARMOUR THYROID [Concomitant]
     Active Substance: THYROID, PORCINE
     Dosage: 15 MG, WHEN FIRST WAKE UP

REACTIONS (5)
  - Orgasm abnormal [Unknown]
  - Intentional product use issue [Recovered/Resolved]
  - Muscle spasms [Recovered/Resolved]
  - Screaming [Unknown]
  - Withdrawal syndrome [Unknown]
